FAERS Safety Report 14154979 (Version 1)
Quarter: 2017Q4

REPORT INFORMATION
  Report Type: Spontaneous
  Country: PT (occurrence: PT)
  Receive Date: 20171102
  Receipt Date: 20171102
  Transmission Date: 20180321
  Serious: Yes (Hospitalization)
  Sender: FDA-Public Use
  Company Number: PT-ROCHE-2013404

PATIENT
  Age: 67 Year
  Sex: Female

DRUGS (2)
  1. COBIMETINIB. [Suspect]
     Active Substance: COBIMETINIB
     Indication: MALIGNANT MELANOMA
     Route: 065
  2. VEMURAFENIB. [Suspect]
     Active Substance: VEMURAFENIB
     Indication: MALIGNANT MELANOMA
     Route: 065

REACTIONS (5)
  - Atrial fibrillation [Unknown]
  - Pyrexia [Unknown]
  - Acute pulmonary oedema [Recovered/Resolved]
  - Diarrhoea [Unknown]
  - Pulmonary hypertension [Recovered/Resolved]
